FAERS Safety Report 9833391 (Version 2)
Quarter: 2014Q1

REPORT INFORMATION
  Report Type: Report from Study
  Country: US (occurrence: US)
  Receive Date: 20140121
  Receipt Date: 20140214
  Transmission Date: 20141002
  Serious: Yes (Other)
  Sender: FDA-Public Use
  Company Number: US-US-EMD SERONO, INC.-7263234

PATIENT
  Age: 35 Year
  Sex: Female

DRUGS (1)
  1. REBIF [Suspect]
     Indication: MULTIPLE SCLEROSIS
     Route: 058
     Dates: start: 20110323

REACTIONS (4)
  - Colitis ulcerative [Unknown]
  - Bone pain [Not Recovered/Not Resolved]
  - Injection site cellulitis [Recovered/Resolved]
  - Anaemia [Unknown]
